FAERS Safety Report 5073093-9 (Version None)
Quarter: 2006Q3

REPORT INFORMATION
  Report Type: 
  Country: None (occurrence: None)
  Receive Date: 20060802
  Receipt Date: 20060720
  Transmission Date: 20061208
  Serious: Yes (Hospitalization)
  Sender: FDA-Public Use
  Company Number: 2006PV017895

PATIENT
  Age: 64 Year
  Sex: Female
  Weight: 85.7298 kg

DRUGS (10)
  1. BYETTA [Suspect]
     Indication: DIABETES MELLITUS NON-INSULIN-DEPENDENT
     Dosage: 5 MCG BID SC
     Route: 058
     Dates: start: 20050901
  2. LANTUS [Concomitant]
  3. NOVOLIN [Concomitant]
  4. LASIX [Concomitant]
  5. LIPITOR [Concomitant]
  6. ASPIRIN [Concomitant]
  7. APRESOLINE [Concomitant]
  8. COZAAR [Concomitant]
  9. METOPROLOL TARTRATE [Concomitant]
  10. NIASPAN [Concomitant]

REACTIONS (4)
  - CHRONIC OBSTRUCTIVE PULMONARY DISEASE [None]
  - CONDITION AGGRAVATED [None]
  - PANCREATITIS [None]
  - WEIGHT DECREASED [None]
